FAERS Safety Report 12841621 (Version 1)
Quarter: 2016Q4

REPORT INFORMATION
  Report Type: Not Available
  Country: US (occurrence: US)
  Receive Date: 20161012
  Receipt Date: 20161012
  Transmission Date: 20170207
  Serious: No
  Sender: FDA-Public Use
  Company Number: US-ANIPHARMA-2016-US-006525

PATIENT
  Age: 85 Year
  Sex: Female

DRUGS (3)
  1. ERYTHROMYCIN STEARATE (NON-SPECIFIC) [Suspect]
     Active Substance: ERYTHROMYCIN STEARATE
     Dosage: UNKNOWN
     Route: 065
  2. VANCOMYCIN HYDROCHLORIDE (NON-SPECIFIC) [Suspect]
     Active Substance: VANCOMYCIN HYDROCHLORIDE
     Dosage: UNKNOWN
     Route: 065
  3. REGLAN [Suspect]
     Active Substance: METOCLOPRAMIDE HYDROCHLORIDE
     Dosage: UNKNOWN
     Route: 065

REACTIONS (3)
  - Asthma [Unknown]
  - Swelling [Unknown]
  - Hypersensitivity [Unknown]
